FAERS Safety Report 23601192 (Version 1)
Quarter: 2024Q1

REPORT INFORMATION
  Report Type: Spontaneous
  Country: CN (occurrence: CN)
  Receive Date: 20240306
  Receipt Date: 20240306
  Transmission Date: 20240410
  Serious: Yes (Hospitalization, Other)
  Sender: FDA-Public Use
  Company Number: CN-SA-SAC20240305000961

PATIENT
  Age: 73 Year
  Sex: Male
  Weight: 55 kg

DRUGS (5)
  1. ENOXAPARIN SODIUM [Suspect]
     Active Substance: ENOXAPARIN SODIUM
     Indication: Anticoagulant therapy
     Dosage: 3000 IU, QD
     Route: 058
     Dates: start: 20231229, end: 20240103
  2. CEFOPERAZONE SODIUM\SULBACTAM SODIUM [Suspect]
     Active Substance: CEFOPERAZONE SODIUM\SULBACTAM SODIUM
     Indication: Chronic obstructive pulmonary disease
     Dosage: 2 G, Q8H
     Route: 041
     Dates: start: 20231228, end: 20240109
  3. SODIUM CHLORIDE [Suspect]
     Active Substance: SODIUM CHLORIDE
     Indication: Infection
     Dosage: 100 ML, Q8H
     Route: 041
     Dates: start: 20231228, end: 20240109
  4. HEPARIN SODIUM [Suspect]
     Active Substance: HEPARIN SODIUM
     Indication: Coagulopathy
     Dosage: 12500 IU, QD (HAEMODIALYSIS)
     Dates: start: 20231228, end: 20231228
  5. HEPARIN SODIUM [Suspect]
     Active Substance: HEPARIN SODIUM
     Dosage: 12500 IU, QD (HAEMODIALYSIS)
     Dates: start: 20240103, end: 20240106

REACTIONS (1)
  - Coagulation test abnormal [Recovering/Resolving]

NARRATIVE: CASE EVENT DATE: 20240110
